FAERS Safety Report 5813709-X (Version None)
Quarter: 2008Q3

REPORT INFORMATION
  Report Type: 
  Country: None (occurrence: None)
  Receive Date: 20080717
  Receipt Date: 20080709
  Transmission Date: 20090109
  Serious: Yes (Other)
  Sender: FDA-Public Use
  Company Number: CN-ROCHE-575760

PATIENT
  Age: 33 Year
  Sex: Female

DRUGS (1)
  1. CEFTRIAXONE SODIUM [Suspect]
     Route: 041

REACTIONS (11)
  - ABDOMINAL RIGIDITY [None]
  - BREATH SOUNDS ABNORMAL [None]
  - CHEST DISCOMFORT [None]
  - CYANOSIS [None]
  - FLUSHING [None]
  - HYPOTENSION [None]
  - NAUSEA [None]
  - PERIPHERAL COLDNESS [None]
  - RESTLESSNESS [None]
  - TACHYCARDIA [None]
  - VOMITING [None]
